FAERS Safety Report 7352866-3 (Version None)
Quarter: 2011Q1

REPORT INFORMATION
  Report Type: 
  Country: None (occurrence: None)
  Receive Date: 20110315
  Receipt Date: 20110307
  Transmission Date: 20110831
  Serious: Yes (Hospitalization, Other)
  Sender: FDA-Public Use
  Company Number: JP-ROCHE-758195

PATIENT
  Sex: Male
  Weight: 61 kg

DRUGS (10)
  1. CARBOPLATIN [Suspect]
     Indication: LUNG ADENOCARCINOMA METASTATIC
     Route: 041
     Dates: start: 20110111, end: 20110111
  2. GRAN [Suspect]
     Route: 041
     Dates: start: 20110208, end: 20110208
  3. DUROTEP [Concomitant]
     Dosage: DOSE FORM: TAPE
     Route: 062
  4. AVASTIN [Suspect]
     Route: 041
     Dates: end: 20110111
  5. GRAN [Suspect]
     Indication: LUNG ADENOCARCINOMA METASTATIC
     Route: 041
     Dates: start: 20110121, end: 20110201
  6. PACLITAXEL [Suspect]
     Indication: LUNG ADENOCARCINOMA METASTATIC
     Route: 041
     Dates: start: 20110111, end: 20110111
  7. GRAN [Suspect]
     Route: 041
     Dates: start: 20110204, end: 20110204
  8. AVASTIN [Suspect]
     Indication: LUNG ADENOCARCINOMA METASTATIC
     Route: 041
     Dates: start: 20110111
  9. WARFARIN [Concomitant]
     Route: 048
     Dates: start: 20101204, end: 20110123
  10. WARFARIN [Concomitant]
     Route: 048
     Dates: start: 20110124

REACTIONS (3)
  - FEBRILE NEUTROPENIA [None]
  - PYREXIA [None]
  - BONE MARROW FAILURE [None]
